FAERS Safety Report 25289457 (Version 1)
Quarter: 2025Q2

REPORT INFORMATION
  Report Type: Report from Study
  Country: JP (occurrence: JP)
  Receive Date: 20250509
  Receipt Date: 20250509
  Transmission Date: 20250717
  Serious: Yes (Hospitalization, Other)
  Sender: ALEXION PHARMACEUTICALS
  Company Number: JP-ASTRAZENECA-240119014_011620_P_1

PATIENT
  Age: 46 Year
  Weight: 42 kg

DRUGS (35)
  1. OLAPARIB [Suspect]
     Active Substance: OLAPARIB
     Indication: Breast cancer
     Dosage: 150 MILLIGRAM, BID
  2. MESALAMINE [Suspect]
     Active Substance: MESALAMINE
     Indication: Crohn^s disease
     Dosage: 1000 MILLIGRAM, TID
  3. MESALAMINE [Suspect]
     Active Substance: MESALAMINE
     Dosage: 1000 MILLIGRAM, TID
  4. LOPERAMIDE HYDROCHLORIDE [Concomitant]
     Active Substance: LOPERAMIDE HYDROCHLORIDE
     Indication: Crohn^s disease
     Dosage: 1 MILLIGRAM, QD
  5. LOPERAMIDE HYDROCHLORIDE [Concomitant]
     Active Substance: LOPERAMIDE HYDROCHLORIDE
     Dosage: 1 MILLIGRAM, TID
  6. LOPERAMIDE HYDROCHLORIDE [Concomitant]
     Active Substance: LOPERAMIDE HYDROCHLORIDE
     Dosage: 1 MILLIGRAM, QD
  7. LOPERAMIDE HYDROCHLORIDE [Concomitant]
     Active Substance: LOPERAMIDE HYDROCHLORIDE
     Dosage: 1 MILLIGRAM, TID
  8. LOPERAMIDE HYDROCHLORIDE [Concomitant]
     Active Substance: LOPERAMIDE HYDROCHLORIDE
     Dosage: 1 MILLIGRAM, QD
  9. LOPERAMIDE HYDROCHLORIDE [Concomitant]
     Active Substance: LOPERAMIDE HYDROCHLORIDE
     Dosage: 1 MILLIGRAM, TID
  10. LOPERAMIDE HYDROCHLORIDE [Concomitant]
     Active Substance: LOPERAMIDE HYDROCHLORIDE
  11. LOPERAMIDE HYDROCHLORIDE [Concomitant]
     Active Substance: LOPERAMIDE HYDROCHLORIDE
  12. REBAMIPIDE [Concomitant]
     Active Substance: REBAMIPIDE
     Indication: Crohn^s disease
  13. REBAMIPIDE [Concomitant]
     Active Substance: REBAMIPIDE
  14. REBAMIPIDE [Concomitant]
     Active Substance: REBAMIPIDE
  15. REBAMIPIDE [Concomitant]
     Active Substance: REBAMIPIDE
  16. REBAMIPIDE [Concomitant]
     Active Substance: REBAMIPIDE
  17. REBAMIPIDE [Concomitant]
     Active Substance: REBAMIPIDE
  18. MIYA-BM [Concomitant]
     Active Substance: CLOSTRIDIUM BUTYRICUM SPORES STRAIN M-55
     Indication: Crohn^s disease
  19. MIYA-BM [Concomitant]
     Active Substance: CLOSTRIDIUM BUTYRICUM SPORES STRAIN M-55
  20. MIYA-BM [Concomitant]
     Active Substance: CLOSTRIDIUM BUTYRICUM SPORES STRAIN M-55
  21. POTASSIUM [Concomitant]
     Active Substance: POTASSIUM
     Indication: Crohn^s disease
  22. POTASSIUM ASPARTATE [Concomitant]
     Active Substance: POTASSIUM ASPARTATE
     Indication: Crohn^s disease
  23. POTASSIUM ASPARTATE [Concomitant]
     Active Substance: POTASSIUM ASPARTATE
  24. POTASSIUM ASPARTATE [Concomitant]
     Active Substance: POTASSIUM ASPARTATE
  25. SCOPOLAMINE [Concomitant]
     Active Substance: SCOPOLAMINE
     Indication: Crohn^s disease
  26. SCOPOLAMINE [Concomitant]
     Active Substance: SCOPOLAMINE
  27. SCOPOLAMINE [Concomitant]
     Active Substance: SCOPOLAMINE
  28. DOMPERIDONE [Concomitant]
     Active Substance: DOMPERIDONE
     Indication: Crohn^s disease
  29. DOMPERIDONE [Concomitant]
     Active Substance: DOMPERIDONE
  30. DOMPERIDONE [Concomitant]
     Active Substance: DOMPERIDONE
  31. PREDONINE [Concomitant]
     Active Substance: PREDNISOLONE
     Indication: Breast cancer
  32. PREDONINE [Concomitant]
     Active Substance: PREDNISOLONE
  33. PREDONINE [Concomitant]
     Active Substance: PREDNISOLONE
  34. PREDONINE [Concomitant]
     Active Substance: PREDNISOLONE
  35. CALONAL [Concomitant]
     Active Substance: ACETAMINOPHEN

REACTIONS (7)
  - Dehydration [Recovered/Resolved]
  - Gastroenteritis [Recovered/Resolved]
  - Gastrointestinal disorder [Recovered/Resolved]
  - Blood creatinine increased [Not Recovered/Not Resolved]
  - Anaemia [Recovered/Resolved]
  - Anaemia [Recovered/Resolved]
  - Anaemia [Recovered/Resolved]
